FAERS Safety Report 5493782-1 (Version None)
Quarter: 2007Q4

REPORT INFORMATION
  Report Type: 
  Country: None (occurrence: None)
  Receive Date: 20071023
  Receipt Date: 20071001
  Transmission Date: 20080405
  Serious: No
  Sender: FDA-Public Use
  Company Number: US-BOEHRINGER INGELHEIM PHARMACEUTICALS, INC.-2007-BP-21977BP

PATIENT
  Sex: Male

DRUGS (2)
  1. AGGRENOX [Suspect]
     Route: 048
  2. LISINOPRIL [Suspect]

REACTIONS (1)
  - DIZZINESS [None]
